FAERS Safety Report 7954504-5 (Version None)
Quarter: 2011Q4

REPORT INFORMATION
  Report Type: 
  Country: None (occurrence: None)
  Receive Date: 20111202
  Receipt Date: 20111123
  Transmission Date: 20120403
  Serious: Yes (Other)
  Sender: FDA-Public Use
  Company Number: CH-JNJFOC-20111110131

PATIENT
  Sex: Male
  Weight: 97 kg

DRUGS (2)
  1. REMICADE [Suspect]
     Dosage: ONCE EVERY SECOND MONTH
     Route: 042
  2. REMICADE [Suspect]
     Indication: CROHN'S DISEASE
     Dosage: ONCE EVERY SECOND MONTH
     Route: 042
     Dates: start: 20110901

REACTIONS (1)
  - ECZEMA [None]
